FAERS Safety Report 7865869-7 (Version None)
Quarter: 2011Q4

REPORT INFORMATION
  Report Type: 
  Country: None (occurrence: None)
  Receive Date: 20111028
  Receipt Date: 20110311
  Transmission Date: 20120403
  Serious: No
  Sender: FDA-Public Use
  Company Number: US-GLAXOSMITHKLINE-A0917814A

PATIENT
  Age: 57 Year
  Sex: Female

DRUGS (6)
  1. ACCOLATE [Concomitant]
  2. NEXIUM [Concomitant]
  3. ADVAIR DISKUS 100/50 [Suspect]
     Indication: ASTHMA
     Dosage: 1PUFF TWICE PER DAY
     Route: 055
     Dates: start: 20040301
  4. LEVOXYL [Concomitant]
  5. ZYRTEC [Concomitant]
  6. LOPID [Concomitant]

REACTIONS (4)
  - THROAT TIGHTNESS [None]
  - OVERDOSE [None]
  - HYPERHIDROSIS [None]
  - FEELING JITTERY [None]
